FAERS Safety Report 10230011 (Version 1)
Quarter: 2014Q2

REPORT INFORMATION
  Report Type: Spontaneous
  Country: US (occurrence: US)
  Receive Date: 20140611
  Receipt Date: 20140611
  Transmission Date: 20141212
  Serious: Yes (Hospitalization)
  Sender: FDA-Public Use
  Company Number: US-ABBVIE-14P-163-1243353-00

PATIENT
  Age: 35 Year
  Sex: Female
  Weight: 129 kg

DRUGS (8)
  1. HUMIRA [Suspect]
     Indication: PSORIASIS
     Route: 058
     Dates: start: 20120407, end: 20120407
  2. PLACEBO (TOFACITINIB CITRATE) [Suspect]
     Indication: PSORIASIS
     Route: 048
     Dates: start: 20120319, end: 20120328
  3. DELTASONE [Suspect]
     Indication: ALLERGY PROPHYLAXIS
     Dosage: TAPER 60 MG TO 20 MG
     Route: 048
     Dates: start: 20110825, end: 20120307
  4. ADVIL [Concomitant]
     Indication: HEADACHE
     Dates: start: 20100820
  5. NUVARING [Concomitant]
     Indication: CONTRACEPTION
     Dates: start: 20100813
  6. ATARAX [Concomitant]
     Indication: ALLERGY PROPHYLAXIS
     Route: 048
     Dates: start: 20120319
  7. CLINDAMYCIN [Concomitant]
     Indication: PRODUCT USED FOR UNKNOWN INDICATION
     Route: 048
  8. TRAMADOL (ULTRAM) [Concomitant]
     Indication: PRODUCT USED FOR UNKNOWN INDICATION
     Route: 048

REACTIONS (7)
  - Myalgia [Unknown]
  - Chills [Unknown]
  - Staphylococcal sepsis [Recovered/Resolved]
  - Microcytic anaemia [Unknown]
  - Staphylococcal sepsis [Unknown]
  - Psoriasis [Unknown]
  - Asthma [Unknown]
